FAERS Safety Report 25017085 (Version 1)
Quarter: 2025Q1

REPORT INFORMATION
  Report Type: Spontaneous
  Country: IN (occurrence: IN)
  Receive Date: 20250227
  Receipt Date: 20250227
  Transmission Date: 20250408
  Serious: Yes (Death, Hospitalization, Other)
  Sender: RANBAXY
  Company Number: IN-SUN PHARMACEUTICAL INDUSTRIES LTD-2025R1-495698

PATIENT
  Age: 38 Year
  Sex: Female

DRUGS (1)
  1. CARBOPLATIN [Suspect]
     Active Substance: CARBOPLATIN
     Indication: Squamous cell carcinoma of the cervix
     Route: 065

REACTIONS (5)
  - Cardiac failure [Fatal]
  - Cervix cancer metastatic [Unknown]
  - Cardiomegaly [Unknown]
  - Pulmonary embolism [Unknown]
  - Cerebral infarction [Unknown]
